FAERS Safety Report 4393333-9 (Version None)
Quarter: 2004Q3

REPORT INFORMATION
  Report Type: 
  Country: None (occurrence: None)
  Receive Date: 20040701
  Receipt Date: 20040618
  Transmission Date: 20050211
  Serious: Yes (Hospitalization)
  Sender: FDA-Public Use
  Company Number: JP-JNJFOC-20040605188

PATIENT
  Age: 56 Year
  Sex: Male

DRUGS (1)
  1. MICONAZOLE [Suspect]
     Indication: OESOPHAGEAL CANDIDIASIS
     Dosage: 20 G, 1 IN 1 DAY
     Dates: start: 20040608, end: 20040611

REACTIONS (2)
  - STOMATITIS [None]
  - SWELLING [None]
